FAERS Safety Report 4507268-1 (Version None)
Quarter: 2004Q4

REPORT INFORMATION
  Report Type: 
  Country: None (occurrence: None)
  Receive Date: 20041025
  Receipt Date: 20040628
  Transmission Date: 20050328
  Serious: Yes (Other)
  Sender: FDA-Public Use
  Company Number: US-JNJFOC-20040505890

PATIENT
  Age: 22 Year
  Sex: Female
  Weight: 51.2565 kg

DRUGS (7)
  1. REMICADE [Suspect]
     Indication: CROHN'S DISEASE
     Dosage: 250 MG, 1 IN 8 WEEK, INTRAVENOUS
     Route: 042
     Dates: start: 20040513, end: 20040513
  2. REMICADE [Suspect]
     Indication: CROHN'S DISEASE
     Dosage: 250 MG, 1 IN 8 WEEK, INTRAVENOUS
     Route: 042
     Dates: start: 20030901
  3. REMICADE [Suspect]
     Indication: CROHN'S DISEASE
     Dosage: 250 MG, 1 IN 8 WEEK, INTRAVENOUS
     Route: 042
     Dates: start: 20031113
  4. REMICADE [Suspect]
     Indication: CROHN'S DISEASE
     Dosage: 250 MG, 1 IN 8 WEEK, INTRAVENOUS
     Route: 042
     Dates: start: 20040108
  5. REMICADE [Suspect]
     Indication: CROHN'S DISEASE
     Dosage: 250 MG, 1 IN 8 WEEK, INTRAVENOUS
     Route: 042
     Dates: start: 20040308
  6. TYLENOL [Concomitant]
  7. SOLU-CORTEF [Concomitant]

REACTIONS (3)
  - DYSPNOEA [None]
  - INFUSION RELATED REACTION [None]
  - URTICARIA [None]
